FAERS Safety Report 21061364 (Version 5)
Quarter: 2022Q4

REPORT INFORMATION
  Report Type: Spontaneous
  Country: US (occurrence: US)
  Receive Date: 20220709
  Receipt Date: 20221208
  Transmission Date: 20230113
  Serious: No
  Sender: FDA-Public Use
  Company Number: US-BRISTOL-MYERS SQUIBB COMPANY-2022-071163

PATIENT
  Age: 79 Year
  Sex: Female

DRUGS (2)
  1. POMALYST [Suspect]
     Active Substance: POMALIDOMIDE
     Indication: Plasma cell myeloma
     Dosage: DAILY FOR 21 DAYS , THEN OFF FOR 7 DAYS
     Route: 048
     Dates: start: 20210917
  2. POMALYST [Suspect]
     Active Substance: POMALIDOMIDE
     Dosage: DAILY FOR 21 DAYS , THEN OFF FOR 7 DAYS
     Route: 048
     Dates: start: 20210917

REACTIONS (2)
  - Fatigue [Recovered/Resolved]
  - White blood cell count decreased [Unknown]
